FAERS Safety Report 20613370 (Version 1)
Quarter: 2022Q1

REPORT INFORMATION
  Report Type: Spontaneous
  Country: CN (occurrence: CN)
  Receive Date: 20220319
  Receipt Date: 20220319
  Transmission Date: 20220423
  Serious: Yes (Other)
  Sender: FDA-Public Use
  Company Number: CN-BAXTER-2022BAX005889

PATIENT
  Age: 43 Year
  Sex: Female
  Weight: 64 kg

DRUGS (10)
  1. CYCLOPHOSPHAMIDE [Suspect]
     Active Substance: CYCLOPHOSPHAMIDE
     Indication: Invasive ductal breast carcinoma
     Dosage: CYCLOPHOSPHAMIDE FOR INJECTION 0.96G + 0.9% SODIUM CHLORIDE INJECTION 100ML AT ONE TIME.
     Route: 041
     Dates: start: 20220225, end: 20220225
  2. CYCLOPHOSPHAMIDE [Suspect]
     Active Substance: CYCLOPHOSPHAMIDE
     Indication: Metastases to lymph nodes
  3. CYCLOPHOSPHAMIDE [Suspect]
     Active Substance: CYCLOPHOSPHAMIDE
     Indication: Metastases to bone
  4. CYCLOPHOSPHAMIDE [Suspect]
     Active Substance: CYCLOPHOSPHAMIDE
     Indication: Metastases to liver
  5. SODIUM CHLORIDE [Suspect]
     Active Substance: SODIUM CHLORIDE
     Indication: Medication dilution
     Dosage: CYCLOPHOSPHAMIDE FOR INJECTION 0.96G + 0.9% SODIUM CHLORIDE INJECTION 100ML AT ONE TIME
     Route: 041
     Dates: start: 20220225, end: 20220225
  6. SODIUM CHLORIDE [Suspect]
     Active Substance: SODIUM CHLORIDE
     Dosage: DOCETAXEL INJECTION 120 MG + 0.9% SODIUM CHLORIDE INJECTION 250ML AT ONE TIME
     Route: 041
     Dates: start: 20220225, end: 20220225
  7. DOCETAXEL [Suspect]
     Active Substance: DOCETAXEL
     Indication: Invasive ductal breast carcinoma
     Dosage: DOCETAXEL INJECTION 120 MG + 0.9% SODIUM CHLORIDE INJECTION 250ML AT ONE TIME
     Route: 041
     Dates: start: 20220225, end: 20220225
  8. DOCETAXEL [Suspect]
     Active Substance: DOCETAXEL
     Indication: Metastases to lymph nodes
  9. DOCETAXEL [Suspect]
     Active Substance: DOCETAXEL
     Indication: Metastases to bone
  10. DOCETAXEL [Suspect]
     Active Substance: DOCETAXEL
     Indication: Metastases to liver

REACTIONS (2)
  - White blood cell count decreased [Recovering/Resolving]
  - Neutrophil count decreased [Recovering/Resolving]

NARRATIVE: CASE EVENT DATE: 20220302
